FAERS Safety Report 6024988-0 (Version None)
Quarter: 2008Q4

REPORT INFORMATION
  Report Type: 
  Country: None (occurrence: None)
  Receive Date: 20081231
  Receipt Date: 20081219
  Transmission Date: 20090506
  Serious: Yes (Death, Hospitalization)
  Sender: FDA-Public Use
  Company Number: US-AVENTIS-200821877GDDC

PATIENT
  Age: 68 Year
  Sex: Male
  Weight: 111 kg

DRUGS (21)
  1. TAXOTERE [Suspect]
     Route: 042
     Dates: start: 20081203, end: 20081203
  2. ENZASTAURIN [Suspect]
     Route: 048
     Dates: start: 20081202, end: 20081202
  3. ENZASTAURIN [Suspect]
     Route: 048
     Dates: start: 20081203, end: 20081206
  4. PREDNISONE TAB [Suspect]
     Route: 048
     Dates: start: 20081203
  5. ENOXAPARIN SODIUM [Concomitant]
     Dosage: DOSE: UNK
     Dates: start: 20081203
  6. PROCHLORPERAZINE [Concomitant]
     Dosage: DOSE: UNK
     Dates: start: 20081126
  7. PERCOCET [Concomitant]
     Dosage: DOSE: UNK
     Dates: start: 20081117
  8. AMLODIPINE BESYLATE W/BENAZEPRIL [Concomitant]
     Dosage: DOSE: UNK
     Dates: start: 20081110
  9. AMBIEN [Concomitant]
     Dosage: DOSE: UNK
     Dates: start: 20081110
  10. FLOMAX [Concomitant]
     Dosage: DOSE: UNK
     Dates: start: 20081110
  11. OMEPRAZOLE [Concomitant]
     Dosage: DOSE: UNK
     Dates: start: 20081103
  12. ALPRAZOLAM [Concomitant]
     Dosage: DOSE: UNK
     Dates: start: 20081008
  13. TOPROL-XL [Concomitant]
     Dosage: DOSE: UNK
     Dates: start: 20080912
  14. FLUTICASONE PROPIONATE [Concomitant]
     Dosage: DOSE: UNK
     Dates: start: 20080902
  15. FISH OIL [Concomitant]
     Dosage: DOSE: UNK
     Dates: start: 20080506
  16. MULTI-VITAMINS [Concomitant]
     Dosage: DOSE: UNK
     Dates: start: 20070228
  17. GLUCOSAMINE [Concomitant]
     Dosage: DOSE: UNK
     Dates: start: 20080228
  18. CHONDROITIN [Concomitant]
     Dosage: DOSE: UNK
     Dates: start: 20080228
  19. VITAMIN E [Concomitant]
     Dosage: DOSE: UNK
     Dates: start: 20070228
  20. VANCOMYCIN HYDROCHLORIDE [Concomitant]
     Dosage: DOSE: UNK
  21. FENTANYL-100 [Concomitant]
     Dosage: DOSE: UNK

REACTIONS (2)
  - DIARRHOEA [None]
  - MYOCARDIAL INFARCTION [None]
